FAERS Safety Report 24366847 (Version 1)
Quarter: 2024Q3

REPORT INFORMATION
  Report Type: Spontaneous
  Country: RU (occurrence: RU)
  Receive Date: 20240926
  Receipt Date: 20240926
  Transmission Date: 20241017
  Serious: Yes (Life-Threatening, Hospitalization, Other)
  Sender: OXFORD PHARMACEUTICALS
  Company Number: RU-Oxford Pharmaceuticals, LLC-2162084

PATIENT
  Age: 34 Year
  Sex: Male

DRUGS (3)
  1. BACLOFEN [Suspect]
     Active Substance: BACLOFEN
     Indication: Product used for unknown indication
  2. CHLORPROTHIXENE [Suspect]
     Active Substance: CHLORPROTHIXENE
  3. PHENAZEPAM [Suspect]
     Active Substance: PHENAZEPAM

REACTIONS (2)
  - Coma [Unknown]
  - Toxicity to various agents [Unknown]
